FAERS Safety Report 13784150 (Version 3)
Quarter: 2018Q2

REPORT INFORMATION
  Report Type: Report from Study
  Country: US (occurrence: US)
  Receive Date: 20170724
  Receipt Date: 20180511
  Transmission Date: 20180711
  Serious: Yes (Death, Hospitalization)
  Sender: FDA-Public Use
  Company Number: US-ACTELION-A-US2017-157066

PATIENT
  Age: 73 Year
  Sex: Female
  Weight: 83.45 kg

DRUGS (21)
  1. ALBUTEROL SULFATE. [Concomitant]
     Active Substance: ALBUTEROL SULFATE
     Dosage: 2 PUFFS
     Route: 055
  2. DONEPEZIL. [Concomitant]
     Active Substance: DONEPEZIL
     Dosage: 10 MG, QD
     Route: 048
  3. FUROSEMIDE. [Concomitant]
     Active Substance: FUROSEMIDE
     Dosage: 20 MG, QOD
     Route: 048
  4. FLUTICASONE PROPIONATE. [Concomitant]
     Active Substance: FLUTICASONE PROPIONATE
     Dosage: 2 SPRAYS EACH NOSTRIL
     Route: 045
  5. NIFEDIPINE. [Concomitant]
     Active Substance: NIFEDIPINE
     Dosage: 30 MG, UNK
     Route: 048
  6. LORADAMED [Concomitant]
     Dosage: 10 MG, QD
     Route: 048
  7. HYDROXYCHLOROQUINE SULFATE. [Concomitant]
     Active Substance: HYDROXYCHLOROQUINE SULFATE
     Dosage: 200 MG, BID
     Route: 048
  8. CLOPIDOGREL BISULFATE. [Concomitant]
     Active Substance: CLOPIDOGREL BISULFATE
     Dosage: 75 MG, QD
     Route: 048
  9. CLOMIPRAMINE [Concomitant]
     Active Substance: CLOMIPRAMINE
     Dosage: 25 MG, QD
     Route: 048
  10. VESICARE [Concomitant]
     Active Substance: SOLIFENACIN SUCCINATE
     Dosage: 10 MG, QD
     Route: 048
  11. OXYGEN. [Concomitant]
     Active Substance: OXYGEN
  12. DEXILANT [Concomitant]
     Active Substance: DEXLANSOPRAZOLE
     Dosage: 60 MG, QD
     Route: 048
  13. SUCRALFATE. [Concomitant]
     Active Substance: SUCRALFATE
     Dosage: 1 G, UNK
     Route: 048
  14. ATORVASTATIN CALCIUM. [Concomitant]
     Active Substance: ATORVASTATIN CALCIUM
     Dosage: 40 MG, UNK
     Route: 048
  15. RAMIPRIL. [Concomitant]
     Active Substance: RAMIPRIL
     Dosage: 1.25 MG, QD
     Route: 048
  16. RISPERDAL [Concomitant]
     Active Substance: RISPERIDONE
     Dosage: 0.25 MG, UNK
     Route: 048
  17. FAMOTIDINE. [Concomitant]
     Active Substance: FAMOTIDINE
     Dosage: 20 MG, UNK
     Route: 048
  18. ZETIA [Concomitant]
     Active Substance: EZETIMIBE
     Dosage: 10 MG, QD
     Route: 048
  19. PROAIR HFA [Concomitant]
     Active Substance: ALBUTEROL SULFATE
     Dosage: 2 PUFFS
     Route: 055
  20. FOLIC ACID. [Concomitant]
     Active Substance: FOLIC ACID
     Dosage: 1 MG, QD
     Route: 048
  21. TRACLEER [Suspect]
     Active Substance: BOSENTAN
     Indication: PULMONARY ARTERIAL HYPERTENSION
     Dosage: 125 MG, BID
     Route: 048
     Dates: start: 20090204

REACTIONS (15)
  - Atrial fibrillation [Unknown]
  - Respiratory arrest [Fatal]
  - Dyspnoea [Not Recovered/Not Resolved]
  - Oxygen consumption increased [Unknown]
  - Chronic kidney disease [Unknown]
  - Gait disturbance [Unknown]
  - Weight increased [Unknown]
  - Diarrhoea [Unknown]
  - Nausea [Not Recovered/Not Resolved]
  - Gastroenteritis [Unknown]
  - Cardiac arrest [Fatal]
  - Oxygen saturation decreased [Unknown]
  - Acute respiratory failure [Unknown]
  - Seizure [Fatal]
  - Hypotension [Recovering/Resolving]

NARRATIVE: CASE EVENT DATE: 20170714
